FAERS Safety Report 4551196-2 (Version None)
Quarter: 2005Q1

REPORT INFORMATION
  Report Type: 
  Country: None (occurrence: None)
  Receive Date: 20050107
  Receipt Date: 20041229
  Transmission Date: 20050727
  Serious: Yes (Hospitalization, Other)
  Sender: FDA-Public Use
  Company Number: USA-2002-0000688

PATIENT
  Age: 31 Year
  Sex: Female
  Weight: 63.5 kg

DRUGS (6)
  1. OXYCONTIN [Suspect]
     Indication: PAIN
     Dosage: 30 MG, BID, ORAL; SEE IMAGE
     Route: 048
  2. OXYCODONE HCL [Concomitant]
  3. ZOLOFT [Concomitant]
  4. PHENERGAN [Concomitant]
  5. NEURONTIN [Concomitant]
  6. VALIUM [Concomitant]

REACTIONS (15)
  - ABDOMINAL PAIN [None]
  - CONDITION AGGRAVATED [None]
  - DEHYDRATION [None]
  - DRUG ABUSER [None]
  - DRUG DEPENDENCE [None]
  - DRUG INEFFECTIVE [None]
  - DRUG WITHDRAWAL SYNDROME [None]
  - HAND FRACTURE [None]
  - INADEQUATE ANALGESIA [None]
  - MEDICATION ERROR [None]
  - NAUSEA [None]
  - PAIN [None]
  - PAIN IN EXTREMITY [None]
  - PANCREATITIS ACUTE [None]
  - VOMITING [None]
